FAERS Safety Report 21786799 (Version 1)
Quarter: 2022Q4

REPORT INFORMATION
  Report Type: Spontaneous
  Country: DZ (occurrence: DZ)
  Receive Date: 20221228
  Receipt Date: 20221228
  Transmission Date: 20230112
  Serious: Yes (Other)
  Sender: FDA-Public Use
  Company Number: DZ-SUN PHARMACEUTICAL INDUSTRIES LTD-2022R1-345040

PATIENT
  Age: 13 Year
  Sex: Male

DRUGS (1)
  1. METHOTREXATE [Suspect]
     Active Substance: METHOTREXATE
     Indication: Juvenile idiopathic arthritis
     Dosage: 7.5 MILLIGRAM, WEEKLY
     Route: 065

REACTIONS (1)
  - Enthesopathy [Recovered/Resolved]
